FAERS Safety Report 5123036-4 (Version None)
Quarter: 2006Q4

REPORT INFORMATION
  Report Type: 
  Country: None (occurrence: None)
  Receive Date: 20061005
  Receipt Date: 20061002
  Transmission Date: 20070319
  Serious: Yes (Hospitalization)
  Sender: FDA-Public Use
  Company Number: 2006-05190

PATIENT
  Age: 63 Year
  Sex: Female
  Weight: 94 kg

DRUGS (11)
  1. PREDNISONE TAB [Suspect]
     Indication: GOUT
     Dosage: 40 MG, DAILY, ORAL
     Route: 048
     Dates: start: 20060821, end: 20060828
  2. SU-011,248  (SUNITINIB MALEATE) (SU-011,248 (SUNITINIB MALATE) [Suspect]
     Indication: NON-SMALL CELL LUNG CANCER
     Dosage: 12.5 TABLET, TID, ORAL
     Route: 048
     Dates: start: 20060331, end: 20060907
  3. BENICAR (OLMESARTAN MEDICATION) [Concomitant]
  4. ZYRTEC [Concomitant]
  5. GLIPIZIDE [Concomitant]
  6. NOVOLOG [Concomitant]
  7. LASIX [Concomitant]
  8. NAPROSYN [Concomitant]
  9. PRILOSEC [Concomitant]
  10. ALREX (LOTEPREDNOL ETABONATE) [Concomitant]
  11. LOPERAMIDE HYDROCHLORIDE [Concomitant]

REACTIONS (6)
  - DYSPNOEA [None]
  - FATIGUE [None]
  - GASTRITIS [None]
  - HAEMOGLOBIN DECREASED [None]
  - HAEMORRHAGE [None]
  - MELAENA [None]
